FAERS Safety Report 5613356-9 (Version None)
Quarter: 2008Q1

REPORT INFORMATION
  Report Type: 
  Country: None (occurrence: None)
  Receive Date: 20080129
  Receipt Date: 20080121
  Transmission Date: 20080703
  Serious: Yes (Life-Threatening, Hospitalization)
  Sender: FDA-Public Use
  Company Number: 2007SP025370

PATIENT
  Age: 55 Year
  Sex: Male
  Weight: 55 kg

DRUGS (2)
  1. PEG-INTRON [Suspect]
     Indication: HEPATITIS C
     Dosage: 80 MCG; QW; SC
     Route: 058
     Dates: start: 20070807, end: 20070821
  2. REBETOL [Suspect]
     Indication: HEPATITIS C
     Dosage: 400 MG; QD; PO
     Route: 048
     Dates: start: 20070807, end: 20070828

REACTIONS (8)
  - ADRENAL INSUFFICIENCY [None]
  - ALDOSTERONE URINE DECREASED [None]
  - BLOOD CHLORIDE DECREASED [None]
  - BLOOD CORTICOTROPHIN ABNORMAL [None]
  - BLOOD SODIUM DECREASED [None]
  - HYPOTHYROIDISM [None]
  - MALAISE [None]
  - URINE OUTPUT INCREASED [None]
